FAERS Safety Report 11922145 (Version 5)
Quarter: 2016Q1

REPORT INFORMATION
  Report Type: Report from Study
  Country: FR (occurrence: FR)
  Receive Date: 20160115
  Receipt Date: 20160307
  Transmission Date: 20160526
  Serious: Yes (Death, Hospitalization)
  Sender: FDA-Public Use
  Company Number: FR-ASTRAZENECA-2016SE04260

PATIENT
  Age: 28360 Day
  Sex: Male

DRUGS (7)
  1. TAGRISSO [Suspect]
     Active Substance: OSIMERTINIB
     Indication: HEPATOCELLULAR CARCINOMA
     Route: 048
     Dates: start: 20151209, end: 20160112
  2. LERCADIPINE [Concomitant]
     Indication: HYPERTENSION
     Route: 048
     Dates: start: 20151208
  3. STRESAM [Concomitant]
     Active Substance: ETIFOXINE
     Indication: ANXIETY
     Dates: start: 20160106, end: 20160106
  4. INEXIUM [Concomitant]
     Active Substance: ESOMEPRAZOLE
     Indication: GASTRIC DISORDER
     Route: 048
  5. SELOKEEN [Concomitant]
     Active Substance: METOPROLOL
     Indication: HYPERTENSION
     Route: 048
     Dates: start: 20151208
  6. EUPRESSYL (URAPIDIL) [Concomitant]
     Indication: HYPERTENSION
     Route: 048
     Dates: start: 20151202
  7. XATRAL (ALFUSOZINE) [Concomitant]
     Indication: URETHRAL STENOSIS
     Route: 048

REACTIONS (1)
  - Acute kidney injury [Fatal]

NARRATIVE: CASE EVENT DATE: 20160108
